FAERS Safety Report 10128609 (Version 4)
Quarter: 2014Q4

REPORT INFORMATION
  Report Type: Report from Study
  Country: FR (occurrence: FR)
  Receive Date: 20140428
  Receipt Date: 20141203
  Transmission Date: 20150528
  Serious: Yes (Hospitalization, Other)
  Sender: FDA-Public Use
  Company Number: FR-ROCHE-1385269

PATIENT
  Age: 50 Year
  Sex: Female

DRUGS (4)
  1. TELAPREVIR [Suspect]
     Active Substance: TELAPREVIR
     Indication: HEPATITIS C
     Dosage: 375 MG SIX PER DAY
     Route: 048
     Dates: start: 20131021, end: 20131224
  2. RIBAVIRIN. [Suspect]
     Active Substance: RIBAVIRIN
     Indication: HEPATITIS C
     Dosage: 200 MG 4 PER DAY
     Route: 048
     Dates: start: 20131021, end: 20131224
  3. RIBAVIRIN. [Suspect]
     Active Substance: RIBAVIRIN
     Route: 048
     Dates: start: 20131118, end: 201402
  4. PEGINTERFERON ALFA-2A [Suspect]
     Active Substance: PEGINTERFERON ALFA-2A
     Indication: HEPATITIS C
     Route: 065
     Dates: start: 20131021, end: 20131224

REACTIONS (4)
  - Anaemia [Recovered/Resolved]
  - Dyspnoea [Recovered/Resolved]
  - Thrombocytopenia [Recovered/Resolved]
  - Partial seizures [Recovered/Resolved]

NARRATIVE: CASE EVENT DATE: 20131029
